FAERS Safety Report 20590059 (Version 5)
Quarter: 2023Q1

REPORT INFORMATION
  Report Type: Report from Study
  Country: US (occurrence: US)
  Receive Date: 20220314
  Receipt Date: 20230123
  Transmission Date: 20230417
  Serious: No
  Sender: FDA-Public Use
  Company Number: US-NOVARTISTESTPH-NVSC2022US058982

PATIENT
  Sex: Female

DRUGS (1)
  1. ENTRESTO [Suspect]
     Active Substance: SACUBITRIL\VALSARTAN
     Indication: Product used for unknown indication
     Dosage: 50 MG (24/26 MG), BID
     Route: 048
     Dates: start: 20220114

REACTIONS (8)
  - Anxiety [Unknown]
  - Throat clearing [Unknown]
  - Gait disturbance [Unknown]
  - Memory impairment [Unknown]
  - Asthenia [Unknown]
  - Hypotension [Unknown]
  - Dizziness [Recovering/Resolving]
  - Inappropriate schedule of product administration [Unknown]
